FAERS Safety Report 11487459 (Version 1)
Quarter: 2015Q3

REPORT INFORMATION
  Report Type: Spontaneous
  Country: US (occurrence: US)
  Receive Date: 20150910
  Receipt Date: 20150910
  Transmission Date: 20151125
  Serious: Yes (Other)
  Sender: FDA-Public Use
  Company Number: US-ROCHE-1431930

PATIENT
  Age: 55 Year
  Sex: Female

DRUGS (6)
  1. PEGASYS [Suspect]
     Active Substance: PEGINTERFERON ALFA-2A
     Indication: CHRONIC HEPATITIS C
     Route: 058
     Dates: start: 20140619, end: 20140728
  2. AMOXICILLIN. [Concomitant]
     Active Substance: AMOXICILLIN
  3. RIBAVIRIN. [Suspect]
     Active Substance: RIBAVIRIN
     Indication: CHRONIC HEPATITIS C
     Dosage: 400/600MG/DAY IN DIVIDED DOSES
     Route: 065
     Dates: start: 20140619, end: 20140728
  4. SOVALDI [Suspect]
     Active Substance: SOFOSBUVIR
     Indication: CHRONIC HEPATITIS C
     Route: 065
     Dates: start: 20140619, end: 20140728
  5. PROAIR HFA [Concomitant]
     Active Substance: ALBUTEROL SULFATE
     Dosage: AS NEEDED
     Route: 065
  6. DULERA [Concomitant]
     Active Substance: FORMOTEROL FUMARATE DIHYDRATE\MOMETASONE FUROATE
     Dosage: AS NEEDED
     Route: 065

REACTIONS (5)
  - Tooth infection [Unknown]
  - Retinopathy [Recovering/Resolving]
  - Bronchitis [Not Recovered/Not Resolved]
  - Eye pain [Not Recovered/Not Resolved]
  - Dizziness [Not Recovered/Not Resolved]

NARRATIVE: CASE EVENT DATE: 20140715
